FAERS Safety Report 8999434 (Version 2)
Quarter: 2013Q1

REPORT INFORMATION
  Report Type: Spontaneous
  Country: US (occurrence: US)
  Receive Date: 20130103
  Receipt Date: 20130107
  Transmission Date: 20140127
  Serious: Yes (Death)
  Sender: FDA-Public Use
  Company Number: US-GILEAD-2013-0067195

PATIENT
  Age: 82 Year
  Sex: Male

DRUGS (2)
  1. LETAIRIS [Suspect]
     Indication: PULMONARY HYPERTENSION
     Dosage: 5 MG, UNK
     Route: 048
     Dates: start: 20111228
  2. LETAIRIS [Suspect]
     Indication: FIBROSIS

REACTIONS (1)
  - Death [Fatal]
